FAERS Safety Report 4745185-2 (Version None)
Quarter: 2005Q3

REPORT INFORMATION
  Report Type: 
  Country: None (occurrence: None)
  Receive Date: 20050815
  Receipt Date: 20050120
  Transmission Date: 20060218
  Serious: Yes (Death)
  Sender: FDA-Public Use
  Company Number: US-BOEHRINGER INGELHEIM PHARMMACEUTICALS, INC.-2005-BP-01029BP

PATIENT
  Sex: Female

DRUGS (8)
  1. SPIRIVA [Suspect]
     Indication: CHRONIC OBSTRUCTIVE PULMONARY DISEASE
     Route: 055
     Dates: start: 20040601
  2. SPIRIVA [Suspect]
     Indication: EMPHYSEMA
  3. ALBUTEROL [Concomitant]
     Route: 055
  4. ALBUTEROL [Concomitant]
     Route: 055
  5. SINGULAIR [Concomitant]
     Route: 048
  6. DILANTIN [Concomitant]
     Route: 048
  7. PAXIL [Concomitant]
     Route: 048
  8. ALBUTEROL [Concomitant]
     Route: 055

REACTIONS (4)
  - ASTHENIA [None]
  - DEATH [None]
  - DYSPNOEA EXACERBATED [None]
  - PHARMACEUTICAL PRODUCT COMPLAINT [None]
